FAERS Safety Report 9955568 (Version 1)
Quarter: 2014Q1

REPORT INFORMATION
  Report Type: Spontaneous
  Country: CL (occurrence: CL)
  Receive Date: 20140304
  Receipt Date: 20140304
  Transmission Date: 20141002
  Serious: Yes (Other)
  Sender: FDA-Public Use
  Company Number: CL-PFIZER INC-2014061391

PATIENT
  Age: 57 Year
  Sex: Female

DRUGS (6)
  1. XALATAN [Suspect]
     Indication: GLAUCOMA
     Dosage: UNK
     Route: 047
     Dates: start: 1999
  2. NIFEDIPINE [Concomitant]
  3. LEVOTHYROXINE [Concomitant]
  4. CARVEDILOL [Concomitant]
  5. FUROSEMIDE [Concomitant]
  6. ACETAMINOPHEN [Concomitant]

REACTIONS (2)
  - Cardiac disorder [Not Recovered/Not Resolved]
  - Allergic bronchitis [Not Recovered/Not Resolved]
